FAERS Safety Report 5779774-3 (Version None)
Quarter: 2008Q2

REPORT INFORMATION
  Report Type: 
  Country: None (occurrence: None)
  Receive Date: 20080618
  Receipt Date: 20071203
  Transmission Date: 20081010
  Serious: Yes (Disabling, Other)
  Sender: FDA-Public Use
  Company Number: 601#2#2007-00001

PATIENT
  Sex: Male

DRUGS (1)
  1. ALPROSTADIL [Suspect]
     Dosage: INTRAVENOUS DRIP
     Route: 041

REACTIONS (8)
  - ARTERIAL OCCLUSIVE DISEASE [None]
  - ARTERIOSCLEROSIS [None]
  - INFECTION [None]
  - LEG AMPUTATION [None]
  - LYMPHOEDEMA [None]
  - NEUROPATHY PERIPHERAL [None]
  - POLYNEUROPATHY [None]
  - SKIN ULCER [None]
